FAERS Safety Report 6243249-8 (Version None)
Quarter: 2009Q2

REPORT INFORMATION
  Report Type: 
  Country: None (occurrence: None)
  Receive Date: 20090622
  Receipt Date: 20090622
  Transmission Date: 20091009
  Serious: Yes (Other)
  Sender: FDA-Public Use
  Company Number: None

PATIENT
  Sex: Female
  Weight: 120.6568 kg

DRUGS (2)
  1. PEGASYS [Suspect]
     Indication: HEPATITIS C
     Dosage: 180 MCG/0.5ML WEEKLY SQ
     Route: 058
     Dates: start: 20090601
  2. REBETOL [Suspect]
     Indication: HEPATITIS C
     Dosage: 1400 MG DAILY 3 TABS AM/4 TABSPM PO
     Route: 048
     Dates: start: 20090601

REACTIONS (2)
  - AGGRESSION [None]
  - ANGER [None]
